FAERS Safety Report 24957732 (Version 1)
Quarter: 2025Q1

REPORT INFORMATION
  Report Type: Spontaneous
  Country: DE (occurrence: DE)
  Receive Date: 20250212
  Receipt Date: 20250212
  Transmission Date: 20250409
  Serious: Yes (Congenital Anomaly)
  Sender: AMGEN
  Company Number: DE-SERVIER-S25001204

PATIENT
  Sex: Male
  Weight: 3.06 kg

DRUGS (2)
  1. IVABRADINE [Suspect]
     Active Substance: IVABRADINE
     Indication: Exposure during pregnancy
     Dosage: 5 MG
     Route: 064
     Dates: start: 202210, end: 202307
  2. PERTUSSIS VACCINE [Concomitant]
     Active Substance: PERTUSSIS VACCINE
     Indication: Immunisation
     Route: 064
     Dates: start: 202305, end: 202305

REACTIONS (3)
  - Ventricular septal defect [Unknown]
  - Congenital aortic anomaly [Unknown]
  - Foetal exposure during pregnancy [Recovered/Resolved]

NARRATIVE: CASE EVENT DATE: 20230801
